FAERS Safety Report 11393241 (Version 2)
Quarter: 2015Q4

REPORT INFORMATION
  Report Type: Spontaneous
  Country: US (occurrence: US)
  Receive Date: 20150818
  Receipt Date: 20151102
  Transmission Date: 20160304
  Serious: Yes (Hospitalization, Other)
  Sender: FDA-Public Use
  Company Number: US-TEVA-587105ACC

PATIENT
  Age: 25 Year
  Sex: Female

DRUGS (1)
  1. PARAGARD T 380A [Suspect]
     Active Substance: COPPER
     Indication: CONTRACEPTION
     Route: 015
     Dates: start: 201402, end: 2015

REACTIONS (8)
  - Dysmenorrhoea [Recovered/Resolved with Sequelae]
  - Device dislocation [Unknown]
  - Procedural pain [Unknown]
  - Medical device complication [Unknown]
  - Embedded device [Unknown]
  - Pain [Unknown]
  - Menorrhagia [Recovered/Resolved with Sequelae]
  - Dyspareunia [Recovered/Resolved with Sequelae]

NARRATIVE: CASE EVENT DATE: 201404
